FAERS Safety Report 7069860-2 (Version None)
Quarter: 2010Q4

REPORT INFORMATION
  Report Type: 
  Country: None (occurrence: None)
  Receive Date: 20101028
  Receipt Date: 20100708
  Transmission Date: 20110411
  Serious: No
  Sender: FDA-Public Use
  Company Number: US-WYE-H16078510

PATIENT
  Sex: Male
  Weight: 74.91 kg

DRUGS (2)
  1. PROTONIX [Suspect]
     Indication: GASTROOESOPHAGEAL REFLUX DISEASE
     Dosage: UNKNOWN
     Dates: start: 19900101, end: 19900101
  2. PROTONIX [Suspect]
     Dosage: UNKNOWN
     Dates: start: 19960101, end: 20080101

REACTIONS (1)
  - PNEUMONIA [None]
